FAERS Safety Report 14106041 (Version 2)
Quarter: 2017Q4

REPORT INFORMATION
  Report Type: Spontaneous
  Country: US (occurrence: US)
  Receive Date: 20171019
  Receipt Date: 20171030
  Transmission Date: 20180321
  Serious: Yes (Other)
  Sender: FDA-Public Use
  Company Number: US-BIOGEN-2017BI00472392

PATIENT
  Age: 0 Year

DRUGS (1)
  1. AVONEX [Suspect]
     Active Substance: INTERFERON BETA-1A
     Indication: PATERNAL EXPOSURE TIMING UNSPECIFIED
     Route: 064
     Dates: start: 20130923, end: 201706

REACTIONS (3)
  - Exposure via father [Recovered/Resolved]
  - Premature baby [Unknown]
  - Umbilical cord prolapse [Recovered/Resolved]

NARRATIVE: CASE EVENT DATE: 20161111
